FAERS Safety Report 12929526 (Version 2)
Quarter: 2016Q4

REPORT INFORMATION
  Report Type: Report from Study
  Country: ES (occurrence: ES)
  Receive Date: 20161110
  Receipt Date: 20161207
  Transmission Date: 20170207
  Serious: Yes (Hospitalization)
  Sender: FDA-Public Use
  Company Number: ES-GLAXOSMITHKLINE-ES2016162160

PATIENT
  Age: 18 Year
  Sex: Female
  Weight: 64.9 kg

DRUGS (1)
  1. PLACEBO [Suspect]
     Active Substance: UNSPECIFIED INGREDIENT
     Indication: SYSTEMIC LUPUS ERYTHEMATOSUS
     Dosage: UNK UNK, CYC
     Route: 042
     Dates: start: 20160104, end: 20160818

REACTIONS (1)
  - Systemic lupus erythematosus disease activity index increased [Recovering/Resolving]

NARRATIVE: CASE EVENT DATE: 20161102
